FAERS Safety Report 4790176-9 (Version None)
Quarter: 2005Q4

REPORT INFORMATION
  Report Type: 
  Country: None (occurrence: None)
  Receive Date: 20051005
  Receipt Date: 20051005
  Transmission Date: 20060501
  Serious: Yes (Hospitalization)
  Sender: FDA-Public Use
  Company Number: None

PATIENT
  Age: 80 Year
  Sex: Male

DRUGS (6)
  1. WARFARIN [Suspect]
     Indication: PULMONARY EMBOLISM
     Dosage: 1 MG/0.5 MG QDD PO
     Route: 048
     Dates: end: 20040908
  2. NIFEDIPINE [Concomitant]
  3. CAPTOPRIL [Concomitant]
  4. FUROSEMIDE [Concomitant]
  5. SIMVASTATIN [Concomitant]
  6. POTASSIUM CHLORIDE [Concomitant]

REACTIONS (3)
  - FALL [None]
  - PERITONEAL HAEMORRHAGE [None]
  - SPLENIC INJURY [None]
